FAERS Safety Report 20170916 (Version 1)
Quarter: 2021Q4

REPORT INFORMATION
  Report Type: Spontaneous
  Country: US (occurrence: US)
  Receive Date: 20211210
  Receipt Date: 20211210
  Transmission Date: 20220303
  Serious: Yes (Other)
  Sender: FDA-Public Use
  Company Number: US-BAXTER-2021BAX038450

PATIENT
  Age: 75 Year
  Sex: Male

DRUGS (2)
  1. DIANEAL LOW CALCIUM PERITONEAL DIALYSIS SOLUTION WITH DEXTROSE [Suspect]
     Active Substance: CALCIUM CHLORIDE\DEXTROSE\MAGNESIUM CHLORIDE\SODIUM CHLORIDE\SODIUM LACTATE
     Indication: Peritoneal dialysis
     Dosage: 4-5 TIMES IN A DAY
     Route: 033
  2. EXTRANEAL [Suspect]
     Active Substance: CALCIUM CHLORIDE\ICODEXTRIN\MAGNESIUM CHLORIDE\SODIUM CHLORIDE\SODIUM LACTATE
     Indication: Peritoneal dialysis
     Route: 033

REACTIONS (14)
  - Loss of consciousness [Recovered/Resolved]
  - Panic reaction [Recovered/Resolved]
  - Hyperhidrosis [Unknown]
  - Fall [Unknown]
  - Dysstasia [Unknown]
  - Urinary incontinence [Unknown]
  - Accident [Unknown]
  - Feeling abnormal [Unknown]
  - Vomiting [Unknown]
  - Diarrhoea [Unknown]
  - Dizziness [Unknown]
  - Product dose omission issue [Unknown]
  - Product availability issue [Unknown]
  - Asthenia [Unknown]

NARRATIVE: CASE EVENT DATE: 20211125
